FAERS Safety Report 6584246-2 (Version None)
Quarter: 2010Q1

REPORT INFORMATION
  Report Type: 
  Country: None (occurrence: None)
  Receive Date: 20100216
  Receipt Date: 20100115
  Transmission Date: 20100710
  Serious: No
  Sender: FDA-Public Use
  Company Number: US-JNJFOC-20100106503

PATIENT
  Sex: Male
  Weight: 63.78 kg

DRUGS (2)
  1. INVEGA [Suspect]
     Indication: SCHIZOPHRENIA
  2. INVEGA [Suspect]

REACTIONS (2)
  - DRUG DISPENSING ERROR [None]
  - PRODUCT QUALITY ISSUE [None]
